FAERS Safety Report 6930160-X (Version None)
Quarter: 2010Q3

REPORT INFORMATION
  Report Type: 
  Country: None (occurrence: None)
  Receive Date: 20100818
  Receipt Date: 20100809
  Transmission Date: 20110219
  Serious: Yes (Death, Other)
  Sender: FDA-Public Use
  Company Number: JP-PFIZER INC-2010100467

PATIENT
  Age: 85 Year
  Sex: Male

DRUGS (4)
  1. DOXORUBICIN HCL [Suspect]
     Indication: LYMPHOMA
     Dosage: 35 MG/M2, UNK
  2. VINCRISTINE [Suspect]
     Indication: LYMPHOMA
     Dosage: 2 MG, UNK
  3. CYCLOPHOSPHAMIDE [Concomitant]
     Indication: LYMPHOMA
     Dosage: 525 MG/M2, UNK
  4. PREDNISOLONE [Concomitant]
     Indication: LYMPHOMA
     Dosage: 100 MG, UNK

REACTIONS (6)
  - FEBRILE NEUTROPENIA [None]
  - HAEMATOCHEZIA [None]
  - HEPATIC FAILURE [None]
  - HYPOVOLAEMIC SHOCK [None]
  - IMPAIRED GASTRIC EMPTYING [None]
  - MUCOSAL EROSION [None]
